FAERS Safety Report 15209859 (Version 1)
Quarter: 2018Q3

REPORT INFORMATION
  Report Type: Spontaneous
  Country: ZA (occurrence: ZA)
  Receive Date: 20180727
  Receipt Date: 20180727
  Transmission Date: 20181010
  Serious: Yes (Death)
  Sender: FDA-Public Use
  Company Number: ZA-STI PHARMA LLC-2052860

PATIENT
  Age: 48 Year
  Sex: Female
  Weight: 61.14 kg

DRUGS (1)
  1. SULFATRIM [Suspect]
     Active Substance: SULFAMETHOXAZOLE\TRIMETHOPRIM
     Route: 048
     Dates: start: 20180617, end: 20180720

REACTIONS (10)
  - Immune thrombocytopenic purpura [Unknown]
  - Sepsis [Unknown]
  - Haemoglobin decreased [Unknown]
  - Muscle spasms [Unknown]
  - Mental disorder [Unknown]
  - Diarrhoea [Unknown]
  - Pyelonephritis [Unknown]
  - Vomiting [Unknown]
  - Dyspnoea [Unknown]
  - Renal failure [Fatal]

NARRATIVE: CASE EVENT DATE: 20180701
